FAERS Safety Report 6524289-8 (Version None)
Quarter: 2009Q4

REPORT INFORMATION
  Report Type: 
  Country: None (occurrence: None)
  Receive Date: 20091231
  Receipt Date: 20091222
  Transmission Date: 20100525
  Serious: Yes (Disabling)
  Sender: FDA-Public Use
  Company Number: IN-MERCK-0912USA03046

PATIENT
  Age: 82 Year
  Sex: Female
  Weight: 72 kg

DRUGS (4)
  1. JANUVIA [Suspect]
     Indication: DIABETES MELLITUS
     Route: 048
     Dates: start: 20091125, end: 20091128
  2. AMLODIPINE [Concomitant]
     Indication: BLOOD PRESSURE
     Route: 048
  3. METFORMIN [Concomitant]
     Route: 065
     Dates: end: 20091101
  4. IRON (UNSPECIFIED) [Concomitant]
     Route: 065
     Dates: end: 20091101

REACTIONS (2)
  - DISORIENTATION [None]
  - INSOMNIA [None]
